FAERS Safety Report 4361081-7 (Version None)
Quarter: 2004Q2

REPORT INFORMATION
  Report Type: 
  Country: None (occurrence: None)
  Receive Date: 20040520
  Receipt Date: 20040511
  Transmission Date: 20050107
  Serious: Yes (Hospitalization)
  Sender: FDA-Public Use
  Company Number: JACFRA2000000434

PATIENT
  Sex: Male

DRUGS (8)
  1. TOPIRAMATE [Suspect]
     Route: 049
     Dates: start: 19981201
  2. TOPIRAMATE [Suspect]
     Route: 049
     Dates: start: 19981201
  3. TOPIRAMATE [Suspect]
     Indication: EPILEPSY
     Route: 049
     Dates: start: 19981201
  4. DEPAKENE [Interacting]
     Route: 049
     Dates: start: 19940101, end: 19990701
  5. DEPAKENE [Interacting]
     Indication: EPILEPSY
     Route: 049
     Dates: start: 19940101, end: 19990701
  6. TEGRETOL [Concomitant]
     Indication: EPILEPSY
     Route: 049
     Dates: start: 19930101
  7. FLUOXETINE [Concomitant]
     Indication: DEPRESSION
     Route: 049
     Dates: start: 19980701
  8. PRIMIDONE [Concomitant]
     Indication: EPILEPSY
     Route: 049

REACTIONS (10)
  - ANTEROGRADE AMNESIA [None]
  - APHASIA [None]
  - APRAXIA [None]
  - COGNITIVE DISORDER [None]
  - DISORIENTATION [None]
  - ELECTROENCEPHALOGRAM ABNORMAL [None]
  - ENCEPHALOPATHY [None]
  - GAMMA-GLUTAMYLTRANSFERASE INCREASED [None]
  - HYPERAMMONAEMIA [None]
  - SOMNOLENCE [None]
